FAERS Safety Report 9347469 (Version 2)
Quarter: 2013Q2

REPORT INFORMATION
  Report Type: Spontaneous
  Country: JP (occurrence: JP)
  Receive Date: 20130614
  Receipt Date: 20130626
  Transmission Date: 20140414
  Serious: Yes (Hospitalization)
  Sender: FDA-Public Use
  Company Number: JP-B.I. PHARMACEUTICALS,INC./RIDGEFIELD-2013-BI-16863NB

PATIENT
  Age: 68 Year
  Sex: Male

DRUGS (10)
  1. PRAZAXA [Suspect]
     Dosage: 220 MG
     Route: 048
  2. METHOTREXATE [Suspect]
     Indication: RHEUMATOID ARTHRITIS
     Route: 048
  3. PREDNISOLONE [Suspect]
     Indication: RHEUMATOID ARTHRITIS
     Dosage: 3 MG
     Route: 048
  4. ECARD [Concomitant]
     Route: 048
  5. ALLEGRA [Concomitant]
     Dosage: 120 MG
     Route: 048
  6. EQUA [Concomitant]
     Dosage: 100 MG
     Route: 048
  7. GASTROM [Concomitant]
     Dosage: 3 G
     Route: 065
  8. STARSIS [Concomitant]
     Dosage: 90 G
     Route: 065
  9. LANSOPRAZOLE-OD [Concomitant]
     Dosage: 15 MG
     Route: 065
  10. FOLIAMIN [Concomitant]
     Dosage: 5 MG
     Route: 065

REACTIONS (1)
  - Pneumocystis jirovecii pneumonia [Not Recovered/Not Resolved]
